FAERS Safety Report 17295783 (Version 1)
Quarter: 2020Q1

REPORT INFORMATION
  Report Type: Spontaneous
  Country: US (occurrence: US)
  Receive Date: 20200121
  Receipt Date: 20200121
  Transmission Date: 20200409
  Serious: Yes (Other)
  Sender: FDA-Public Use
  Company Number: US-PFIZER INC-2020023378

PATIENT
  Age: 69 Year
  Sex: Male

DRUGS (1)
  1. NEURONTIN [Suspect]
     Active Substance: GABAPENTIN
     Indication: BACK DISORDER
     Dosage: UNK

REACTIONS (5)
  - Dyspnoea [Unknown]
  - Off label use [Unknown]
  - Asthma [Unknown]
  - Myocardial infarction [Unknown]
  - Product use in unapproved indication [Unknown]
